FAERS Safety Report 21066006 (Version 1)
Quarter: 2022Q3

REPORT INFORMATION
  Report Type: Spontaneous
  Country: US (occurrence: US)
  Receive Date: 20220711
  Receipt Date: 20220711
  Transmission Date: 20221027
  Serious: No
  Sender: FDA-Public Use
  Company Number: US-PFIZER INC-PV202200018795

PATIENT
  Age: 54 Year
  Sex: Female

DRUGS (1)
  1. CIBINQO [Suspect]
     Active Substance: ABROCITINIB
     Indication: Dermatitis atopic
     Dosage: 100 MG, 1X/DAY (1 TABLET BY MOUTH ONCE DAILY)
     Route: 048

REACTIONS (3)
  - Rash erythematous [Unknown]
  - Lichenification [Unknown]
  - Skin erosion [Unknown]
